FAERS Safety Report 7703752-8 (Version None)
Quarter: 2011Q3

REPORT INFORMATION
  Report Type: 
  Country: None (occurrence: None)
  Receive Date: 20110823
  Receipt Date: 20110812
  Transmission Date: 20111222
  Serious: Yes (Other)
  Sender: FDA-Public Use
  Company Number: GB-SANOFI-AVENTIS-2011SA051940

PATIENT
  Sex: Female

DRUGS (3)
  1. DABIGATRAN [Suspect]
     Indication: CEREBROVASCULAR ACCIDENT PROPHYLAXIS
     Route: 065
  2. MULTAQ [Interacting]
     Route: 065
  3. DABIGATRAN [Suspect]
     Indication: ATRIAL FIBRILLATION
     Route: 065

REACTIONS (3)
  - CARDIAC TAMPONADE [None]
  - DRUG INTERACTION [None]
  - DIARRHOEA [None]
